FAERS Safety Report 17013679 (Version 1)
Quarter: 2019Q4

REPORT INFORMATION
  Report Type: Spontaneous
  Country: FR (occurrence: FR)
  Receive Date: 20191110
  Receipt Date: 20191110
  Transmission Date: 20200122
  Serious: Yes (Other)
  Sender: FDA-Public Use
  Company Number: FR-BEH-2019109289

PATIENT
  Sex: Female

DRUGS (1)
  1. HUMAN FACTOR XIII (INN) [Suspect]
     Active Substance: FACTOR XIII CONCENTRATE (HUMAN)
     Indication: FACTOR XIII DEFICIENCY
     Dosage: 20 INTERNATIONAL UNIT/KILOGRAM, EVERY 3 WEEKS
     Route: 065

REACTIONS (2)
  - Foetal death [Unknown]
  - Polyhydramnios [Unknown]
